FAERS Safety Report 17008496 (Version 2)
Quarter: 2019Q4

REPORT INFORMATION
  Report Type: Spontaneous
  Country: PL (occurrence: PL)
  Receive Date: 20191108
  Receipt Date: 20191211
  Transmission Date: 20200122
  Serious: Yes (Hospitalization, Other)
  Sender: FDA-Public Use
  Company Number: PL-ACCORD-160162

PATIENT
  Age: 49 Year
  Sex: Male

DRUGS (10)
  1. AMLODIPINE [Concomitant]
     Active Substance: AMLODIPINE BESYLATE
  2. RAMIPRIL. [Suspect]
     Active Substance: RAMIPRIL
     Indication: HYPERTENSION
     Dosage: STRENGTH:5 MG
     Route: 065
  3. CARVEDILOL/CARVEDILOL HYDROCHLODRIDE [Suspect]
     Active Substance: CARVEDILOL HYDROCHLORIDE
     Indication: PRODUCT USED FOR UNKNOWN INDICATION
     Dosage: 25 MILLIGRAM, INCREASED DOSE, STRENGTH: 12.5 MG
     Route: 065
  4. METFORMIN [Concomitant]
     Active Substance: METFORMIN HYDROCHLORIDE
  5. TELMISARTAN. [Concomitant]
     Active Substance: TELMISARTAN
  6. VARDENAFIL/VARDENAFIL HYDROCHLORIDE [Concomitant]
     Active Substance: VARDENAFIL HYDROCHLORIDE
  7. ATORVASTATIN [Concomitant]
     Active Substance: ATORVASTATIN
  8. HYDROCHLOROTHIAZIDE. [Suspect]
     Active Substance: HYDROCHLOROTHIAZIDE
     Indication: HYPERTENSION
     Dosage: STRENGTH: 12.5 MG
     Route: 065
  9. CARVEDILOL/CARVEDILOL HYDROCHLODRIDE [Concomitant]
     Active Substance: CARVEDILOL HYDROCHLORIDE
     Indication: HYPERTENSION
     Dosage: STRENGTH:12.5 MG
  10. CARVEDILOL/CARVEDILOL HYDROCHLODRIDE [Suspect]
     Active Substance: CARVEDILOL HYDROCHLORIDE
     Indication: HYPERTENSION
     Dosage: STRENGTH: 12.5 MG
     Route: 065

REACTIONS (11)
  - Central obesity [Recovering/Resolving]
  - Sleep apnoea syndrome [Recovering/Resolving]
  - Type V hyperlipidaemia [Unknown]
  - Snoring [Recovering/Resolving]
  - Nocturia [Recovered/Resolved]
  - Glucose tolerance impaired [Unknown]
  - Therapeutic product effect incomplete [Unknown]
  - Fatigue [Recovered/Resolved]
  - Heart valve incompetence [Unknown]
  - Erectile dysfunction [Recovering/Resolving]
  - Hypertension [Recovering/Resolving]
